FAERS Safety Report 6341885-1 (Version None)
Quarter: 2009Q3

REPORT INFORMATION
  Report Type: 
  Country: None (occurrence: None)
  Receive Date: 20090903
  Receipt Date: 20090820
  Transmission Date: 20100115
  Serious: Yes (Other)
  Sender: FDA-Public Use
  Company Number: 8051082

PATIENT
  Age: 49 Year
  Sex: Male
  Weight: 66 kg

DRUGS (9)
  1. PREDNISOLONE [Suspect]
     Dosage: PO
     Route: 048
  2. CYCLOPHOSPHAMIDE [Suspect]
     Dosage: IV
     Route: 042
  3. DOXORUBICIN HCL [Suspect]
     Dosage: IV
     Route: 042
  4. VINCRISTINE [Suspect]
     Dosage: IV
     Route: 042
  5. RITUXIMAB [Suspect]
     Dosage: IV
     Route: 042
  6. ENTECAVIR [Suspect]
     Indication: HEPATITIS B
  7. FLUCONAZOLE [Concomitant]
  8. SULFAMETHOXAZOLE AND TRIMETHOPRIM [Concomitant]
  9. REBAMIPIDE [Concomitant]

REACTIONS (4)
  - ALANINE AMINOTRANSFERASE INCREASED [None]
  - ASPARTATE AMINOTRANSFERASE INCREASED [None]
  - HEPATITIS B [None]
  - LIVER INJURY [None]
